FAERS Safety Report 4380337-5 (Version None)
Quarter: 2004Q2

REPORT INFORMATION
  Report Type: 
  Country: None (occurrence: None)
  Receive Date: 20040618
  Receipt Date: 20031002
  Transmission Date: 20050107
  Serious: Yes (Hospitalization, Other)
  Sender: FDA-Public Use
  Company Number: US-AMGEN-US050148

PATIENT
  Sex: Female

DRUGS (12)
  1. ENBREL [Suspect]
     Indication: RHEUMATOID ARTHRITIS
     Route: 058
     Dates: start: 20030501, end: 20030906
  2. ENBREL [Suspect]
     Dates: start: 20030722, end: 20030903
  3. METHOTREXATE [Suspect]
     Route: 048
     Dates: start: 20021209, end: 20030601
  4. PREDNISONE [Concomitant]
     Route: 048
     Dates: start: 20020201
  5. ACTONEL (PROCTOR + GAMBLE) [Concomitant]
  6. TOPRAL [Concomitant]
  7. PROTONIX [Concomitant]
  8. HYDROCHLOROTHIAZIDE [Concomitant]
  9. SYNTHROID [Concomitant]
  10. FOLIC ACID [Concomitant]
     Dates: start: 20021209
  11. TEMAZEPAM [Concomitant]
     Dates: start: 20030206
  12. NSAIDS [Concomitant]
     Dates: start: 20021101, end: 20030601

REACTIONS (5)
  - AEROMONA INFECTION [None]
  - CULTURE STOOL POSITIVE [None]
  - DIARRHOEA [None]
  - DIVERTICULITIS [None]
  - LUNG NEOPLASM [None]
